FAERS Safety Report 4664426-3 (Version None)
Quarter: 2005Q2

REPORT INFORMATION
  Report Type: 
  Country: None (occurrence: None)
  Receive Date: 20050518
  Receipt Date: 20050317
  Transmission Date: 20051028
  Serious: Yes (Disabling)
  Sender: FDA-Public Use
  Company Number: PHRM2005FR01080

PATIENT
  Age: 80 Year
  Sex: Female

DRUGS (4)
  1. RYTHMOL [Concomitant]
     Route: 048
  2. LAMISIL [Suspect]
     Indication: ONYCHOMYCOSIS
     Dosage: 250 MG, QD
     Route: 048
     Dates: start: 20050202, end: 20050314
  3. LAMISIL [Suspect]
     Indication: FUNGAL SKIN INFECTION
     Route: 061
  4. KESTINE [Concomitant]
     Indication: PRURITUS
     Dosage: 1 DF, QD
     Route: 048
     Dates: start: 20050202, end: 20050314

REACTIONS (4)
  - ASTHENIA [None]
  - HYPOCHROMIC ANAEMIA [None]
  - NEUTROPHIL COUNT INCREASED [None]
  - WHITE BLOOD CELL COUNT INCREASED [None]
